FAERS Safety Report 5738046-3 (Version None)
Quarter: 2008Q2

REPORT INFORMATION
  Report Type: 
  Country: None (occurrence: None)
  Receive Date: 20080514
  Receipt Date: 20080508
  Transmission Date: 20081010
  Serious: Yes (Death, Hospitalization, Other)
  Sender: FDA-Public Use
  Company Number: VE-ABBOTT-08P-178-0445326-00

PATIENT
  Age: 40 Year
  Sex: Female
  Weight: 70 kg

DRUGS (5)
  1. KALETRA [Suspect]
     Indication: HIV INFECTION
     Route: 048
     Dates: start: 20071101, end: 20080201
  2. KALETRA [Suspect]
  3. LAMIVUDINE [Concomitant]
     Indication: HIV INFECTION
     Route: 048
     Dates: start: 20071101, end: 20080201
  4. LAMIVUDINE [Concomitant]
  5. DIDANOSINE [Concomitant]
     Indication: HIV INFECTION
     Route: 048
     Dates: start: 20071101, end: 20080201

REACTIONS (10)
  - CYTOMEGALOVIRUS INFECTION [None]
  - GASTRIC DILATATION [None]
  - GENERAL PHYSICAL HEALTH DETERIORATION [None]
  - HEPATIC FAILURE [None]
  - HYPOXIA [None]
  - IMMUNE RECONSTITUTION SYNDROME [None]
  - IMPAIRED GASTRIC EMPTYING [None]
  - PANCREATIC INSUFFICIENCY [None]
  - PANCREATITIS [None]
  - RESPIRATORY FAILURE [None]
